FAERS Safety Report 18618077 (Version 2)
Quarter: 2020Q4

REPORT INFORMATION
  Report Type: Spontaneous
  Country: JP (occurrence: JP)
  Receive Date: 20201215
  Receipt Date: 20201229
  Transmission Date: 20210114
  Serious: Yes (Death, Hospitalization)
  Sender: FDA-Public Use
  Company Number: JP-BIODELIVERY SCIENCES INTERNATIONAL-E2B_00001331

PATIENT
  Age: 64 Year
  Sex: Male
  Weight: 41 kg

DRUGS (17)
  1. METHADONE HYDROCHLORIDE. [Suspect]
     Active Substance: METHADONE HYDROCHLORIDE
     Dosage: 15 MG, QD
     Route: 048
     Dates: start: 20201026, end: 20201027
  2. OXYCODONE HYDROCHLORIDE. [Concomitant]
     Active Substance: OXYCODONE HYDROCHLORIDE
     Indication: CHEST PAIN
     Dosage: 10 MG, QD, PRN
     Route: 065
     Dates: end: 20201026
  3. SITAGLIPTIN PHOSPHATE [Concomitant]
     Active Substance: SITAGLIPTIN PHOSPHATE
     Indication: TYPE 2 DIABETES MELLITUS
     Dosage: 50 MG, QD
     Route: 065
     Dates: start: 20201016, end: 20201026
  4. ELOBIXIBAT [Concomitant]
     Active Substance: ELOBIXIBAT
     Indication: CONSTIPATION
     Dosage: 10 MG, QD
     Route: 065
     Dates: start: 20201020, end: 20201026
  5. PYRIDOXINE HYDROCHLORIDE/CYANOCOBALAMIN/BENFOTIAMINE [Concomitant]
     Indication: HYPOVITAMINOSIS
     Dosage: 3 {DF}, TID
     Route: 065
     Dates: start: 20201026
  6. MIRTAZAPINE. [Concomitant]
     Active Substance: MIRTAZAPINE
     Indication: INSOMNIA
     Dosage: 15 MG, QD
     Route: 065
     Dates: start: 20200924, end: 20201026
  7. METHADONE HYDROCHLORIDE. [Suspect]
     Active Substance: METHADONE HYDROCHLORIDE
     Dosage: 20 MG, QD
     Route: 048
     Dates: start: 20201020
  8. SUVOREXANT. [Concomitant]
     Active Substance: SUVOREXANT
     Indication: INSOMNIA
     Dosage: 15 MG, QD
     Route: 065
     Dates: end: 20201015
  9. PARACETAMOL [Concomitant]
     Active Substance: ACETAMINOPHEN
     Indication: CANCER PAIN
     Dosage: 4000 MG, QD
     Route: 065
     Dates: end: 20201026
  10. LOXOPROFEN SODIUM [Concomitant]
     Active Substance: LOXOPROFEN SODIUM
     Indication: CANCER PAIN
     Dosage: 3 {DF}, TID
     Route: 065
     Dates: start: 20201018, end: 20201026
  11. NALDEMEDINE [Suspect]
     Active Substance: NALDEMEDINE
     Indication: CONSTIPATION
     Dosage: 0.2 MG, QD
     Route: 065
     Dates: end: 20201026
  12. METHADONE HYDROCHLORIDE. [Suspect]
     Active Substance: METHADONE HYDROCHLORIDE
     Indication: LUNG NEOPLASM MALIGNANT
     Dosage: 5 MG, TID
     Route: 048
     Dates: start: 20201006
  13. BETAMETHASONE. [Concomitant]
     Active Substance: BETAMETHASONE
     Indication: BRAIN OEDEMA
     Dosage: 3 MG, QD
     Route: 065
     Dates: end: 20201026
  14. RAMELTEON [Concomitant]
     Active Substance: RAMELTEON
     Indication: INSOMNIA
     Dosage: 8 MG, QD
     Route: 065
     Dates: start: 20201021, end: 20201026
  15. VONOPRAZAN FUMARATE [Concomitant]
     Active Substance: VONOPRAZAN FUMARATE
     Indication: GASTROOESOPHAGEAL REFLUX DISEASE
     Dosage: 10 MG, QD
     Route: 065
     Dates: end: 20201026
  16. ISOSORBIDE. [Concomitant]
     Active Substance: ISOSORBIDE
     Indication: BRAIN OEDEMA
     Dosage: 90 ML, QD
     Route: 065
     Dates: start: 20200928, end: 20201026
  17. CEFDINIR. [Concomitant]
     Active Substance: CEFDINIR
     Indication: INFECTION
     Dosage: 3 {DF}, TID
     Route: 065
     Dates: start: 20201026

REACTIONS (4)
  - Delirium [Not Recovered/Not Resolved]
  - Myocardial infarction [Fatal]
  - Arrhythmia [Fatal]
  - Chest pain [Fatal]

NARRATIVE: CASE EVENT DATE: 20201026
